FAERS Safety Report 18622533 (Version 2)
Quarter: 2020Q4

REPORT INFORMATION
  Report Type: Spontaneous
  Country: DE (occurrence: DE)
  Receive Date: 20201216
  Receipt Date: 20201228
  Transmission Date: 20210114
  Serious: Yes (Hospitalization, Other)
  Sender: FDA-Public Use
  Company Number: DE-PFIZER INC-2020493706

PATIENT
  Sex: Female

DRUGS (5)
  1. HYDROXYCHLOROQUINE [Suspect]
     Active Substance: HYDROXYCHLOROQUINE
     Dosage: 400 MG
     Dates: start: 20200803
  2. SULFASALAZINE. [Suspect]
     Active Substance: SULFASALAZINE
     Indication: AXIAL SPONDYLOARTHRITIS
     Dosage: 2000 MG
     Dates: start: 20110201, end: 20200715
  3. HYDROXYCHLOROQUINE [Suspect]
     Active Substance: HYDROXYCHLOROQUINE
     Indication: AXIAL SPONDYLOARTHRITIS
     Dosage: 300 MG
     Dates: start: 20191025
  4. CELECOXIB. [Suspect]
     Active Substance: CELECOXIB
     Indication: AXIAL SPONDYLOARTHRITIS
     Dosage: 200 MG
     Dates: start: 20200504
  5. ACEMETACIN [Suspect]
     Active Substance: ACEMETACIN
     Indication: AXIAL SPONDYLOARTHRITIS
     Dosage: 180 MG
     Dates: start: 20170906, end: 20200215

REACTIONS (4)
  - Neck pain [Unknown]
  - Off label use [Unknown]
  - Spinal osteoarthritis [Unknown]
  - Systemic lupus erythematosus [Unknown]

NARRATIVE: CASE EVENT DATE: 20110201
